FAERS Safety Report 6688327-4 (Version None)
Quarter: 2010Q2

REPORT INFORMATION
  Report Type: 
  Country: None (occurrence: None)
  Receive Date: 20100420
  Receipt Date: 20100408
  Transmission Date: 20101027
  Serious: Yes (Hospitalization, Other)
  Sender: FDA-Public Use
  Company Number: PHEH2006US10882

PATIENT
  Sex: Male
  Weight: 79.365 kg

DRUGS (22)
  1. AREDIA [Suspect]
     Indication: MULTIPLE MYELOMA
     Dates: end: 20050301
  2. ZOMETA [Suspect]
     Indication: MULTIPLE MYELOMA
     Dates: start: 20050301, end: 20060101
  3. HUMULIN R [Concomitant]
  4. LIPITOR [Concomitant]
  5. DIGOXIN [Concomitant]
  6. LISINOPRIL [Concomitant]
  7. NEXIUM [Concomitant]
  8. VELCADE [Concomitant]
     Indication: MULTIPLE MYELOMA
  9. RADIOTHERAPY [Concomitant]
  10. DECADRON [Concomitant]
  11. PENICILLIN ^GRUNENTHAL^ [Concomitant]
  12. DEXAMETHASONE [Concomitant]
  13. REVLIMID [Concomitant]
  14. AVODART [Concomitant]
  15. CIPROFLOXACIN [Concomitant]
  16. UROXATRAL [Concomitant]
  17. AMIODARONE [Concomitant]
  18. ECOTRIN [Concomitant]
  19. GLUCOPHAGE [Concomitant]
  20. ZOCOR [Concomitant]
  21. PRILOSEC [Concomitant]
  22. NIACIN [Concomitant]

REACTIONS (31)
  - ANXIETY [None]
  - ARRHYTHMIA [None]
  - BONE DISORDER [None]
  - CARDIAC DISORDER [None]
  - CARDIAC FAILURE CONGESTIVE [None]
  - CARDIAC PACEMAKER INSERTION [None]
  - CHOLECYSTECTOMY [None]
  - DEBRIDEMENT [None]
  - DECREASED INTEREST [None]
  - DENTAL OPERATION [None]
  - DIVERTICULUM [None]
  - EJECTION FRACTION ABNORMAL [None]
  - GENERAL PHYSICAL HEALTH DETERIORATION [None]
  - HYPERKALAEMIA [None]
  - HYPERTENSION [None]
  - HYPOGLYCAEMIA [None]
  - IMPAIRED HEALING [None]
  - IRON DEFICIENCY ANAEMIA [None]
  - METASTASES TO BONE [None]
  - MULTIPLE MYELOMA [None]
  - MUSCULOSKELETAL DISCOMFORT [None]
  - OSTEOLYSIS [None]
  - OSTEOMYELITIS [None]
  - OSTEONECROSIS [None]
  - OSTEORADIONECROSIS [None]
  - PAIN [None]
  - PARAESTHESIA [None]
  - PRIMARY SEQUESTRUM [None]
  - RENAL FAILURE CHRONIC [None]
  - ROSACEA [None]
  - TOOTH EXTRACTION [None]
